FAERS Safety Report 24944089 (Version 3)
Quarter: 2025Q1

REPORT INFORMATION
  Report Type: Spontaneous
  Country: IN (occurrence: IN)
  Receive Date: 20250207
  Receipt Date: 20250326
  Transmission Date: 20250409
  Serious: Yes (Death, Hospitalization)
  Sender: ROCHE
  Company Number: IN-ROCHE-10000194095

PATIENT
  Age: 58 Year
  Sex: Male

DRUGS (2)
  1. TECENTRIQ [Suspect]
     Active Substance: ATEZOLIZUMAB
     Indication: Plasma cell myeloma
     Route: 042
     Dates: start: 20241130
  2. TECENTRIQ [Suspect]
     Active Substance: ATEZOLIZUMAB
     Indication: Hepatocellular carcinoma

REACTIONS (4)
  - Off label use [Unknown]
  - Platelet count decreased [Unknown]
  - Infection [Unknown]
  - Death [Fatal]
